FAERS Safety Report 4440928-X (Version None)
Quarter: 2004Q3

REPORT INFORMATION
  Report Type: 
  Country: None (occurrence: None)
  Receive Date: 20040728
  Receipt Date: 20040406
  Transmission Date: 20050211
  Serious: No
  Sender: FDA-Public Use
  Company Number: USA040464235

PATIENT
  Age: 46 Year
  Sex: Female

DRUGS (2)
  1. STRATTERA [Suspect]
     Dosage: 40 MG DAY
     Dates: start: 20040404
  2. ESTROGEN NOS [Concomitant]

REACTIONS (4)
  - CHILLS [None]
  - FATIGUE [None]
  - INSOMNIA [None]
  - SOMNOLENCE [None]
